FAERS Safety Report 9779399 (Version 1)
Quarter: 2013Q4

REPORT INFORMATION
  Report Type: Spontaneous
  Country: JP (occurrence: JP)
  Receive Date: 20131223
  Receipt Date: 20131223
  Transmission Date: 20140711
  Serious: Yes (Other)
  Sender: FDA-Public Use
  Company Number: JP-GILEAD-2013-0090345

PATIENT
  Sex: Male

DRUGS (2)
  1. HEPSERA [Suspect]
     Indication: HEPATIC CIRRHOSIS
     Route: 048
     Dates: start: 2005
  2. ZEFIX /01221401/ [Suspect]
     Indication: HEPATIC CIRRHOSIS
     Route: 048
     Dates: start: 2004

REACTIONS (7)
  - Tibia fracture [Recovering/Resolving]
  - Arthralgia [Unknown]
  - Gait disturbance [Unknown]
  - Drug tolerance [Unknown]
  - Fanconi syndrome acquired [Unknown]
  - Hypophosphataemia [Unknown]
  - Renal impairment [Unknown]
